FAERS Safety Report 10072000 (Version 2)
Quarter: 2014Q2

REPORT INFORMATION
  Report Type: Spontaneous
  Country: US (occurrence: None)
  Receive Date: 20140409
  Receipt Date: 20140425
  Transmission Date: 20141212
  Serious: Yes (Death, Hospitalization)
  Sender: FDA-Public Use
  Company Number: 2271516

PATIENT
  Age: 67 Year
  Sex: Female
  Weight: 94 kg

DRUGS (20)
  1. GEMCITABINE [Suspect]
     Indication: SARCOMA
     Dosage: CYCLICAL
     Route: 042
     Dates: start: 20140228, end: 20140307
  2. GEMCITABINE [Suspect]
     Indication: SOFT TISSUE DISORDER
     Dosage: CYCLICAL
     Route: 042
     Dates: start: 20140228, end: 20140307
  3. INVESTIGATIONAL DRUG [Suspect]
     Indication: SARCOMA
     Dosage: CYCLICAL
     Route: 042
     Dates: start: 20140228, end: 20140307
  4. INVESTIGATIONAL DRUG [Suspect]
     Indication: SOFT TISSUE DISORDER
     Dosage: CYCLICAL
     Route: 042
     Dates: start: 20140228, end: 20140307
  5. DOCETAXEL [Suspect]
     Indication: SARCOMA
     Dosage: CYCLICAL
     Route: 042
     Dates: start: 20140307, end: 20140307
  6. DOCETAXEL [Suspect]
     Indication: SOFT TISSUE DISORDER
     Dosage: CYCLICAL
     Route: 042
     Dates: start: 20140307, end: 20140307
  7. ACETAMINOPHEN [Concomitant]
  8. AMLODIPINE [Concomitant]
  9. DEXAMETHASONE [Concomitant]
  10. DOCUSATE [Concomitant]
  11. ENOXAPARIN [Concomitant]
  12. ACETAMINOPHEN W/HYDROCODONE [Concomitant]
  13. METOPROLOL [Concomitant]
  14. PAROXETINE [Concomitant]
  15. LISINOPRIL [Concomitant]
  16. ENOXAPARIN SODIUM [Concomitant]
  17. PROMETHAZINE [Concomitant]
  18. PROCHLORPERAZINE [Concomitant]
  19. ONDANSETRON [Concomitant]
  20. OLANZAPINE [Concomitant]

REACTIONS (20)
  - Dyspnoea [None]
  - Nausea [None]
  - Headache [None]
  - Infusion related reaction [None]
  - Night sweats [None]
  - Hypophagia [None]
  - Dehydration [None]
  - Chest pain [None]
  - Musculoskeletal pain [None]
  - Constipation [None]
  - Myalgia [None]
  - Fatigue [None]
  - Respiratory distress [None]
  - Speech disorder [None]
  - Cardiac arrest [None]
  - Blood glucose increased [None]
  - Blood lactate dehydrogenase increased [None]
  - Hepatomegaly [None]
  - Metastases to lung [None]
  - Condition aggravated [None]
